FAERS Safety Report 8781593 (Version 1)
Quarter: 2012Q4

REPORT INFORMATION
  Report Type: 
  Country: US (occurrence: US)
  Receive Date: 20120913
  Receipt Date: 20120913
  Transmission Date: 20130627
  Serious: No
  Sender: FDA-Public Use
  Company Number: US-009507513-1209USA001071

PATIENT

DRUGS (3)
  1. JANUVIA [Suspect]
     Indication: BLOOD GLUCOSE ABNORMAL
     Dosage: UNK
     Route: 048
     Dates: start: 20120822, end: 20120829
  2. METFORMIN [Concomitant]
  3. AMARYL [Concomitant]

REACTIONS (1)
  - Blood glucose increased [Unknown]
